FAERS Safety Report 7311171-1 (Version None)
Quarter: 2011Q1

REPORT INFORMATION
  Report Type: 
  Country: None (occurrence: None)
  Receive Date: 20110224
  Receipt Date: 20110215
  Transmission Date: 20110831
  Serious: Yes (Other)
  Sender: FDA-Public Use
  Company Number: CN-ROCHE-760023

PATIENT
  Age: 59 Year
  Sex: Female

DRUGS (3)
  1. EPIRUBICIN [Concomitant]
     Indication: BREAST CANCER
  2. DOCETAXEL [Concomitant]
     Indication: BREAST CANCER
  3. HERCEPTIN [Suspect]
     Indication: BREAST CANCER
     Route: 041

REACTIONS (1)
  - ASTHMA [None]
